FAERS Safety Report 7270556-2 (Version None)
Quarter: 2011Q1

REPORT INFORMATION
  Report Type: 
  Country: None (occurrence: None)
  Receive Date: 20110202
  Receipt Date: 20110124
  Transmission Date: 20110831
  Serious: Yes (Other)
  Sender: FDA-Public Use
  Company Number: US-US-EMD SERONO, INC.-7037969

PATIENT
  Sex: Female

DRUGS (15)
  1. SOLU-MEDROL [Concomitant]
     Route: 042
     Dates: start: 20060723, end: 20060724
  2. IBUPROFEN [Concomitant]
     Dates: start: 20051108
  3. PREDNISONE [Concomitant]
     Dates: start: 20060701, end: 20060816
  4. MOTRIN [Concomitant]
     Indication: HEADACHE
     Dosage: UP TO 2 PILLS, PRN
     Route: 048
  5. IV METHYPREDNISOLONE [Concomitant]
     Indication: MULTIPLE SCLEROSIS RELAPSE
     Route: 042
     Dates: start: 20060128, end: 20060201
  6. SOLU-MEDROL [Concomitant]
     Indication: PROPHYLAXIS
     Route: 042
     Dates: start: 20060405, end: 20060406
  7. SOLU-MEDROL [Concomitant]
     Indication: MULTIPLE SCLEROSIS RELAPSE
     Route: 042
     Dates: start: 20051209, end: 20051211
  8. COPAXONE [Concomitant]
     Indication: MULTIPLE SCLEROSIS
     Dates: start: 20060122, end: 20060201
  9. PREDNISONE [Concomitant]
     Indication: MULTIPLE SCLEROSIS RELAPSE
     Dates: start: 20060202
  10. MAXIFED [Concomitant]
     Indication: HEADACHE
  11. IBUPROFEN [Concomitant]
     Indication: HEADACHE
     Dates: start: 20051108
  12. IV METHYPREDNISOLONE [Concomitant]
     Route: 042
     Dates: start: 20060607, end: 20060611
  13. REBIF [Suspect]
     Indication: MULTIPLE SCLEROSIS
     Route: 058
     Dates: start: 20050907, end: 20051005
  14. PREDNISONE [Concomitant]
     Indication: PROPHYLAXIS
     Dates: start: 20060612
  15. PROTONIX [Concomitant]
     Dates: start: 20060101

REACTIONS (1)
  - AUTOIMMUNE HEPATITIS [None]
